FAERS Safety Report 17878906 (Version 1)
Quarter: 2020Q2

REPORT INFORMATION
  Report Type: Spontaneous
  Country: FR (occurrence: FR)
  Receive Date: 20200610
  Receipt Date: 20200610
  Transmission Date: 20200714
  Serious: Yes (Hospitalization)
  Sender: FDA-Public Use
  Company Number: FR-TEVA-2020-FR-1244864

PATIENT
  Age: 79 Year
  Sex: Female
  Weight: 75.8 kg

DRUGS (6)
  1. VENLAFAXINE [Concomitant]
     Active Substance: VENLAFAXINE HYDROCHLORIDE
  2. VERAPAMIL (CHLORHYDRATE DE) [Suspect]
     Active Substance: VERAPAMIL HYDROCHLORIDE
     Indication: POISONING DELIBERATE
     Dosage: 360 MG
     Route: 048
     Dates: start: 20200514, end: 20200514
  3. FLECAINE [Suspect]
     Active Substance: FLECAINIDE
     Indication: POISONING DELIBERATE
     Dosage: 300 MG
     Route: 048
     Dates: start: 20200514, end: 20200514
  4. IMOVANE [Concomitant]
     Active Substance: ZOPICLONE
  5. TERALITHE [Suspect]
     Active Substance: LITHIUM CARBONATE
     Indication: POISONING DELIBERATE
     Dosage: 1200 MG
     Route: 048
     Dates: start: 20200514, end: 20200514
  6. LEVOTHYROXINE SODIQUE [Concomitant]
     Active Substance: LEVOTHYROXINE SODIUM

REACTIONS (3)
  - Antipsychotic drug level increased [Not Recovered/Not Resolved]
  - Bundle branch block left [Not Recovered/Not Resolved]
  - Bundle branch block right [Not Recovered/Not Resolved]

NARRATIVE: CASE EVENT DATE: 20200514
